FAERS Safety Report 25186395 (Version 8)
Quarter: 2025Q3

REPORT INFORMATION
  Report Type: Report from Study
  Country: BR (occurrence: BR)
  Receive Date: 20250410
  Receipt Date: 20250907
  Transmission Date: 20251020
  Serious: No
  Sender: JOHNSON AND JOHNSON
  Company Number: BR-JNJFOC-20250373420

PATIENT
  Age: 42 Year
  Sex: Male
  Weight: 100 kg

DRUGS (8)
  1. GOLIMUMAB [Suspect]
     Active Substance: GOLIMUMAB
     Indication: Ankylosing spondylitis
     Route: 058
  2. GOLIMUMAB [Suspect]
     Active Substance: GOLIMUMAB
  3. SIMPONI [Suspect]
     Active Substance: GOLIMUMAB
     Indication: Ankylosing spondylitis
     Dosage: STRENGTH: 50.00 MG / 0.50 ML
     Route: 058
     Dates: start: 20250313
  4. SIMPONI [Suspect]
     Active Substance: GOLIMUMAB
  5. GOLIMUMAB [Suspect]
     Active Substance: GOLIMUMAB
     Indication: Ankylosing spondylitis
     Route: 058
  6. GOLIMUMAB [Suspect]
     Active Substance: GOLIMUMAB
  7. GOLIMUMAB [Suspect]
     Active Substance: GOLIMUMAB
  8. CELECOXIB [Concomitant]
     Active Substance: CELECOXIB
     Indication: Product used for unknown indication

REACTIONS (9)
  - Back pain [Unknown]
  - Inflammation [Unknown]
  - Wrong technique in product usage process [Unknown]
  - Pain in extremity [Unknown]
  - Impaired work ability [Unknown]
  - Drug ineffective [Unknown]
  - Bone pain [Unknown]
  - Device defective [Unknown]
  - Arthralgia [Unknown]
